FAERS Safety Report 5195362-4 (Version None)
Quarter: 2006Q4

REPORT INFORMATION
  Report Type: 
  Country: None (occurrence: None)
  Receive Date: 20061229
  Receipt Date: 20061219
  Transmission Date: 20070319
  Serious: Yes (Other)
  Sender: FDA-Public Use
  Company Number: NL-PFIZER INC-2006155256

PATIENT
  Age: 63 Year

DRUGS (5)
  1. ATORVASTATIN CALCIUM [Suspect]
  2. ALLOPURINOL SODIUM [Concomitant]
  3. DIAZEPAM [Concomitant]
  4. FUROSEMIDE [Concomitant]
  5. METOPROLOL SUCCINATE [Concomitant]

REACTIONS (3)
  - GAIT DISTURBANCE [None]
  - NEUROPATHY PERIPHERAL [None]
  - SPEECH DISORDER [None]
